FAERS Safety Report 4975053-2 (Version None)
Quarter: 2006Q2

REPORT INFORMATION
  Report Type: 
  Country: None (occurrence: None)
  Receive Date: 20060414
  Receipt Date: 20060414
  Transmission Date: 20061013
  Serious: Yes (Hospitalization)
  Sender: FDA-Public Use
  Company Number: None

PATIENT
  Sex: Female
  Weight: 53 kg

DRUGS (14)
  1. GLIADEL [Suspect]
     Indication: GLIOBLASTOMA MULTIFORME
     Dosage: 7.7 MG PER WAFER - MAX OF 8
     Dates: start: 20060213
  2. O6-BENZYLGUANINE (06BG) [Suspect]
     Indication: GLIOBLASTOMA MULTIFORME
     Dosage: 30  MG/M2 INFUSION X 5 DAYS
     Dates: start: 20060213, end: 20060218
  3. CELEBREX [Concomitant]
  4. ZOLOFT [Concomitant]
  5. COSOPT OU [Concomitant]
  6. FOSAMAX [Concomitant]
  7. TYLENOL (CAPLET) [Concomitant]
  8. CALCIUM GLUCONATE [Concomitant]
  9. PHORPHOROUS [Concomitant]
  10. FLAX SEED OIL [Concomitant]
  11. MELATONIN [Concomitant]
  12. LYCOPENE [Concomitant]
  13. CARROT JUICE [Concomitant]
  14. LOVENOX [Concomitant]

REACTIONS (7)
  - CANDIDIASIS [None]
  - CHEST PAIN [None]
  - DEHYDRATION [None]
  - DYSPNOEA [None]
  - FATIGUE [None]
  - HYPOTENSION [None]
  - PULMONARY EMBOLISM [None]
